FAERS Safety Report 8982899 (Version 1)
Quarter: 2012Q4

REPORT INFORMATION
  Report Type: 
  Country: GB (occurrence: GB)
  Receive Date: 20121224
  Receipt Date: 20121224
  Transmission Date: 20130627
  Serious: Yes (Other)
  Sender: FDA-Public Use
  Company Number: GB-PFIZER INC-2012323048

PATIENT
  Age: 37 Year
  Sex: Female

DRUGS (8)
  1. CHAMPIX [Suspect]
     Dosage: 1 mg, 2x/day
     Route: 048
     Dates: start: 20121116, end: 20121203
  2. METFORMIN [Concomitant]
  3. CITALOPRAM [Concomitant]
  4. AMITRIPTYLINE [Concomitant]
  5. CLENIL [Concomitant]
  6. INSULIN GLARGINE [Concomitant]
  7. HUMALOG [Concomitant]
  8. SALBUTAMOL [Concomitant]

REACTIONS (2)
  - Depressed mood [Recovering/Resolving]
  - Crying [Recovering/Resolving]
